FAERS Safety Report 10681484 (Version 3)
Quarter: 2015Q1

REPORT INFORMATION
  Report Type: Spontaneous
  Country: US (occurrence: US)
  Receive Date: 20141230
  Receipt Date: 20150326
  Transmission Date: 20150720
  Serious: Yes (Other)
  Sender: FDA-Public Use
  Company Number: US-009507513-1412USA009277

PATIENT
  Age: 21 Year
  Sex: Female
  Weight: 77.32 kg

DRUGS (1)
  1. NEXPLANON [Suspect]
     Active Substance: ETONOGESTREL
     Indication: CONTRACEPTION
     Dosage: 1 ROD/ ONCE EVERY THREE YEARS
     Route: 059
     Dates: start: 20130926, end: 20141223

REACTIONS (2)
  - Limb discomfort [Unknown]
  - Device breakage [Recovered/Resolved]

NARRATIVE: CASE EVENT DATE: 20141201
